FAERS Safety Report 25743827 (Version 1)
Quarter: 2025Q3

REPORT INFORMATION
  Report Type: Spontaneous
  Country: EU (occurrence: EU)
  Receive Date: 20250831
  Receipt Date: 20250831
  Transmission Date: 20251020
  Serious: Yes (Death)
  Sender: BEIGENE
  Company Number: EU-BEIGENE-BGN-2025-014770

PATIENT

DRUGS (2)
  1. TEVIMBRA [Suspect]
     Active Substance: TISLELIZUMAB-JSGR
     Indication: Oesophageal squamous cell carcinoma
  2. TEVIMBRA [Suspect]
     Active Substance: TISLELIZUMAB-JSGR

REACTIONS (1)
  - Death [Fatal]
